FAERS Safety Report 20710762 (Version 2)
Quarter: 2022Q2

REPORT INFORMATION
  Report Type: Report from Study
  Country: NG (occurrence: NG)
  Receive Date: 20220414
  Receipt Date: 20220420
  Transmission Date: 20220721
  Serious: Yes (Life-Threatening, Other)
  Sender: FDA-Public Use
  Company Number: NG-PFIZER INC-202200511602

PATIENT
  Age: 20 Year
  Sex: Female

DRUGS (1)
  1. LINEZOLID [Suspect]
     Active Substance: LINEZOLID
     Dosage: 600 MG, DAILY

REACTIONS (2)
  - Anaemia [Recovered/Resolved]
  - Optic neuritis [Not Recovered/Not Resolved]
